FAERS Safety Report 22932594 (Version 4)
Quarter: 2024Q3

REPORT INFORMATION
  Report Type: Spontaneous
  Country: DE (occurrence: DE)
  Receive Date: 20230912
  Receipt Date: 20240811
  Transmission Date: 20241017
  Serious: Yes (Life-Threatening, Hospitalization, Other)
  Sender: ABBVIE
  Company Number: DE-ABBVIE-5396769

PATIENT
  Sex: Male

DRUGS (2)
  1. ADALIMUMAB [Suspect]
     Active Substance: ADALIMUMAB
     Indication: Hidradenitis
     Route: 058
  2. UPADACITINIB [Suspect]
     Active Substance: UPADACITINIB
     Indication: Hidradenitis
     Route: 048

REACTIONS (4)
  - Haemophagocytic lymphohistiocytosis [Recovered/Resolved]
  - Off label use [Unknown]
  - Drug ineffective [Unknown]
  - Varicella zoster virus infection [Recovered/Resolved]

NARRATIVE: CASE EVENT DATE: 20230101
